FAERS Safety Report 6309360-8 (Version None)
Quarter: 2009Q3

REPORT INFORMATION
  Report Type: 
  Country: None (occurrence: None)
  Receive Date: 20090814
  Receipt Date: 20090629
  Transmission Date: 20100115
  Serious: Yes (Death)
  Sender: FDA-Public Use
  Company Number: US-JNJFOC-20090609532

PATIENT
  Sex: Male
  Weight: 80.8 kg

DRUGS (23)
  1. TMC114 [Suspect]
     Indication: HIV INFECTION
     Route: 048
  2. ETRAVIRINE [Suspect]
     Indication: HIV INFECTION
     Route: 048
  3. FUZEON [Suspect]
     Indication: HIV INFECTION
     Route: 058
  4. NORVIR [Suspect]
     Indication: HIV INFECTION
     Route: 048
  5. RALTEGRAVIR [Suspect]
     Indication: HIV INFECTION
     Route: 048
  6. EMTRICITABINE AND TENOFOVIR DISOPROXIL FUMARATE [Suspect]
  7. EMTRICITABINE AND TENOFOVIR DISOPROXIL FUMARATE [Suspect]
     Indication: HIV INFECTION
  8. EPIVIR [Concomitant]
     Indication: HIV INFECTION
  9. KALETRA [Concomitant]
     Indication: HIV INFECTION
  10. ACYCLOVIR [Concomitant]
  11. ALDARA [Concomitant]
  12. SEPTRA [Concomitant]
  13. LAMICTAL [Concomitant]
  14. IBUPROFEN [Concomitant]
  15. LIPITOR [Concomitant]
  16. GEMFIBROZIL [Concomitant]
  17. LEVALBUTEROL HYDROCHLORIDE [Concomitant]
  18. ANDROGEL [Concomitant]
  19. OXYCONTIN [Concomitant]
  20. EFUDEX [Concomitant]
  21. NORTRIPTYLINE HCL [Concomitant]
  22. MEXILETENE [Concomitant]
  23. MOTRIN [Concomitant]

REACTIONS (1)
  - DEATH [None]
